FAERS Safety Report 13795901 (Version 2)
Quarter: 2017Q3

REPORT INFORMATION
  Report Type: Spontaneous
  Country: JP (occurrence: JP)
  Receive Date: 20170726
  Receipt Date: 20170801
  Transmission Date: 20171127
  Serious: Yes (Hospitalization)
  Sender: FDA-Public Use
  Company Number: JP-009507513-1707JPN010270

PATIENT
  Age: 80 Year
  Sex: Female

DRUGS (55)
  1. GLACTIV [Suspect]
     Active Substance: SITAGLIPTIN
     Dosage: 50 MG DAILY
     Route: 048
     Dates: start: 201602, end: 201602
  2. BROTIZOLAM [Concomitant]
     Active Substance: BROTIZOLAM
     Dosage: UNK, OD
  3. KARY UNI [Concomitant]
     Active Substance: PIRENOXINE
     Dosage: UNK
  4. GLACTIV [Suspect]
     Active Substance: SITAGLIPTIN
     Dosage: 50 MG DAILY
     Route: 048
     Dates: start: 201604, end: 201604
  5. GLACTIV [Suspect]
     Active Substance: SITAGLIPTIN
     Dosage: 50 MG DAILY
     Route: 048
     Dates: start: 201606, end: 201606
  6. GLACTIV [Suspect]
     Active Substance: SITAGLIPTIN
     Dosage: 50 MG DAILY
     Route: 048
     Dates: start: 201701, end: 201701
  7. PREDNISOLONE. [Concomitant]
     Active Substance: PREDNISOLONE
     Dosage: UNK
  8. SELTOUCH [Concomitant]
     Active Substance: FELBINAC
     Dosage: UNK
  9. DUROTEP [Concomitant]
     Active Substance: FENTANYL
     Dosage: UNK
  10. SOLYUGEN F [Concomitant]
     Dosage: UNK
  11. ZOLPIDEM TARTRATE. [Concomitant]
     Active Substance: ZOLPIDEM TARTRATE
     Dosage: UNK
  12. DEXTROSE. [Concomitant]
     Active Substance: DEXTROSE
     Dosage: UNK
  13. BUP (PROPIVERINE HYDROCHLORIDE) [Concomitant]
     Dosage: UNK
  14. ASTAT [Concomitant]
     Dosage: SOL, UNK
  15. GLACTIV [Suspect]
     Active Substance: SITAGLIPTIN
     Dosage: 50 MG DAILY
     Route: 048
     Dates: start: 201601, end: 201601
  16. GLACTIV [Suspect]
     Active Substance: SITAGLIPTIN
     Dosage: 50 MG DAILY
     Route: 048
     Dates: start: 201605, end: 201605
  17. ZALTOPROFEN [Concomitant]
     Active Substance: ZALTOPROFEN
     Dosage: UNK
  18. LYRICA [Concomitant]
     Active Substance: PREGABALIN
     Dosage: UNK
  19. RIZE [Concomitant]
     Active Substance: CLOTIAZEPAM
     Dosage: UNK
  20. ATARAX [Concomitant]
     Active Substance: HYDROXYZINE HYDROCHLORIDE
     Dosage: UNK
  21. CLOTIAZEPAM [Concomitant]
     Active Substance: CLOTIAZEPAM
     Dosage: UNK
  22. SOLDEM 1 [Concomitant]
     Active Substance: DEXTROSE\SODIUM CHLORIDE\SODIUM LACTATE
     Dosage: UNK
  23. HYALEIN [Concomitant]
     Active Substance: HYALURONATE SODIUM
     Dosage: UNK
  24. GLACTIV [Suspect]
     Active Substance: SITAGLIPTIN
     Dosage: 50 MG DAILY
     Route: 048
     Dates: start: 201608, end: 201608
  25. PREDNISOLONE SODIUM SUCCINATE [Concomitant]
     Active Substance: PREDNISOLONE SODIUM SUCCINATE
     Dosage: UNK
  26. SOLDEM 3 [Concomitant]
     Dosage: UNK
  27. RADICUT [Concomitant]
     Active Substance: EDARAVONE
     Dosage: UNK
  28. GLACTIV [Suspect]
     Active Substance: SITAGLIPTIN
     Indication: TYPE 2 DIABETES MELLITUS
     Dosage: 50 MG DAILY
     Route: 048
     Dates: start: 20130413, end: 201512
  29. CALFINA [Concomitant]
     Active Substance: ALFACALCIDOL
     Dosage: UNK
  30. PREDONINE [Concomitant]
     Active Substance: PREDNISOLONE
     Dosage: UNK
  31. LEUCOVORIN. [Concomitant]
     Active Substance: LEUCOVORIN
     Dosage: UNK
  32. YOKU-KAN-SAN [Concomitant]
     Active Substance: HERBALS
     Dosage: UNK
  33. LIPITOR [Concomitant]
     Active Substance: ATORVASTATIN CALCIUM
     Dosage: UNK
  34. TAKEPRON [Concomitant]
     Active Substance: LANSOPRAZOLE
     Dosage: UNK
  35. FENTANYL CITRATE. [Concomitant]
     Active Substance: FENTANYL CITRATE
     Dosage: UNK
  36. HEPARIN SODIUM. [Concomitant]
     Active Substance: HEPARIN SODIUM
     Dosage: UNK
  37. BFLUID [Concomitant]
     Active Substance: AMINO ACIDS\DEXTROSE\ELECTROLYTES NOS\VITAMINS
     Dosage: UNK
  38. PELOL [Concomitant]
     Dosage: UNK
  39. NAUZELIN [Concomitant]
     Active Substance: DOMPERIDONE
     Dosage: UNK
  40. ROHYPNOL [Concomitant]
     Active Substance: FLUNITRAZEPAM
     Dosage: UNK
  41. GLACTIV [Suspect]
     Active Substance: SITAGLIPTIN
     Dosage: 50 MG DAILY
     Route: 048
     Dates: start: 201607, end: 201607
  42. TRAMCET [Concomitant]
     Active Substance: ACETAMINOPHEN\TRAMADOL
     Dosage: UNK
  43. SODIUM CHLORIDE. [Concomitant]
     Active Substance: SODIUM CHLORIDE
     Dosage: ISOTONIC SOLUTION, UNK
  44. VONFENAC [Concomitant]
     Active Substance: DICLOFENAC SODIUM
     Dosage: UNK
  45. CYMBALTA [Concomitant]
     Active Substance: DULOXETINE HYDROCHLORIDE
     Dosage: UNK
  46. RISPERIDONE. [Concomitant]
     Active Substance: RISPERIDONE
     Dosage: UNK
  47. METGLUCO [Concomitant]
     Active Substance: METFORMIN HYDROCHLORIDE
     Dosage: UNK
  48. RHEUMATREX [Concomitant]
     Active Substance: METHOTREXATE SODIUM
     Dosage: UNK
  49. BONALON [Concomitant]
     Active Substance: ALENDRONATE SODIUM
     Dosage: JELLY, UNK
  50. TRAMAL [Concomitant]
     Active Substance: TRAMADOL
     Dosage: UNK
  51. EDIROL [Concomitant]
     Active Substance: ELDECALCITOL
     Dosage: UNK
  52. SERENACE [Concomitant]
     Active Substance: HALOPERIDOL
     Dosage: UNK
  53. WARFARIN [Concomitant]
     Active Substance: WARFARIN
     Dosage: UNK
  54. AMLODIPINE [Concomitant]
     Active Substance: AMLODIPINE BESYLATE
     Dosage: UNK, OD
  55. MAGMITT [Concomitant]
     Active Substance: MAGNESIUM OXIDE
     Dosage: UNK

REACTIONS (4)
  - Pulmonary infarction [Recovered/Resolved]
  - Large intestinal obstruction [Recovered/Resolved]
  - Small intestinal obstruction [Recovered/Resolved]
  - Cerebral infarction [Unknown]

NARRATIVE: CASE EVENT DATE: 20151212
